FAERS Safety Report 5589491-0 (Version None)
Quarter: 2008Q1

REPORT INFORMATION
  Report Type: 
  Country: None (occurrence: None)
  Receive Date: 20080114
  Receipt Date: 20080108
  Transmission Date: 20080703
  Serious: Yes (Other)
  Sender: FDA-Public Use
  Company Number: US-JNJFOC-20080102085

PATIENT
  Sex: Female
  Weight: 60.33 kg

DRUGS (26)
  1. INFLIXIMAB [Suspect]
     Route: 042
  2. INFLIXIMAB [Suspect]
     Route: 042
  3. INFLIXIMAB [Suspect]
     Route: 042
  4. INFLIXIMAB [Suspect]
     Route: 042
  5. INFLIXIMAB [Suspect]
     Route: 042
  6. INFLIXIMAB [Suspect]
     Route: 042
  7. INFLIXIMAB [Suspect]
     Route: 042
  8. INFLIXIMAB [Suspect]
     Route: 042
  9. INFLIXIMAB [Suspect]
     Route: 042
  10. INFLIXIMAB [Suspect]
     Route: 042
  11. INFLIXIMAB [Suspect]
     Route: 042
  12. INFLIXIMAB [Suspect]
     Route: 042
  13. INFLIXIMAB [Suspect]
     Route: 042
  14. INFLIXIMAB [Suspect]
     Route: 042
  15. INFLIXIMAB [Suspect]
     Route: 042
  16. INFLIXIMAB [Suspect]
     Route: 042
  17. INFLIXIMAB [Suspect]
     Route: 042
  18. INFLIXIMAB [Suspect]
     Route: 042
  19. INFLIXIMAB [Suspect]
     Route: 042
  20. INFLIXIMAB [Suspect]
     Indication: CROHN'S DISEASE
     Route: 042
  21. CYCLOSPORINE [Concomitant]
  22. MESALAMINE [Concomitant]
  23. ANTISPASMODICS [Concomitant]
  24. BUDESONIDE [Concomitant]
  25. ANTIDEPRESSANTS [Concomitant]
  26. PREDNISONE TAB [Concomitant]

REACTIONS (1)
  - AUTOIMMUNE THYROIDITIS [None]
